FAERS Safety Report 9206202 (Version 5)
Quarter: 2014Q1

REPORT INFORMATION
  Report Type: Spontaneous
  Country: US (occurrence: None)
  Receive Date: 20130401
  Receipt Date: 20140311
  Transmission Date: 20141002
  Serious: Yes (Hospitalization)
  Sender: FDA-Public Use
  Company Number: 2013US001008

PATIENT
  Age: 39 Year
  Sex: Female
  Weight: 50 kg

DRUGS (14)
  1. PONATINIB [Suspect]
     Indication: CHRONIC MYELOID LEUKAEMIA
     Route: 048
     Dates: start: 20110128, end: 20121229
  2. ARAVA (LEFLUNOMIDE) [Concomitant]
  3. ASPIRIN (ACETYLSALICYLIC ACID) [Concomitant]
  4. FOLIC ACID (FOLIC ACID) [Concomitant]
  5. GLIPIZIDE (GLIPIZIDE) [Concomitant]
  6. HYDROCODONE (HYDROCODONE BITARTRATE) [Concomitant]
  7. IRON (IRON) [Concomitant]
  8. KETOPROFEN (KETOPROFEN) [Concomitant]
  9. LISINOPRIL (LISINOPRIL) [Concomitant]
  10. METFORMIN (METFORMIN) [Concomitant]
  11. RITALIN [Concomitant]
  12. SIMVASTATIN (SIMVASTATIN) [Concomitant]
  13. XARELTO (RIVAROXABAN) [Concomitant]
  14. SENOKOT-S (DOCUSATE SODIUM, SENNA ALEXANDRINA) [Concomitant]

REACTIONS (4)
  - Cerebrovascular accident [None]
  - Carotid artery occlusion [None]
  - Cerebral artery occlusion [None]
  - Convulsion [None]
